FAERS Safety Report 8943454 (Version 1)
Quarter: 2012Q4

REPORT INFORMATION
  Report Type: 
  Country: US (occurrence: US)
  Receive Date: 20121203
  Receipt Date: 20121203
  Transmission Date: 20130627
  Serious: Yes (Other)
  Sender: FDA-Public Use
  Company Number: US-PFIZER INC-2012300812

PATIENT
  Age: 31 Year
  Sex: Male

DRUGS (3)
  1. NEURONTIN [Suspect]
     Dosage: 600 mg, 2x/day
  2. VICODIN ES [Concomitant]
     Dosage: UNK
  3. PROTONIX [Concomitant]
     Dosage: UNK

REACTIONS (2)
  - Gun shot wound [Unknown]
  - Impaired work ability [Unknown]
